FAERS Safety Report 6939506-X (Version None)
Quarter: 2010Q3

REPORT INFORMATION
  Report Type: 
  Country: None (occurrence: None)
  Receive Date: 20100819
  Receipt Date: 20100804
  Transmission Date: 20110219
  Serious: Yes (Death, Hospitalization)
  Sender: FDA-Public Use
  Company Number: 2010MA001514

PATIENT
  Age: 67 Year
  Sex: Female

DRUGS (14)
  1. SULFATRIM PEDIATRIC [Suspect]
     Indication: PROPHYLAXIS
     Dosage: 960 MG;BIW;PO
     Route: 048
     Dates: start: 20100518, end: 20100618
  2. THALIDOMIDE [Suspect]
     Indication: MULTIPLE MYELOMA
     Dosage: 50 MG;PO
     Route: 048
     Dates: start: 20100518, end: 20100625
  3. DEXAMETHASONE [Concomitant]
  4. CYCLOPHOSPHAMIDE [Concomitant]
  5. CLODRONIC [Concomitant]
  6. ONDANSETRON [Concomitant]
  7. DOMPERIDOME [Concomitant]
  8. ASPIRIN [Concomitant]
  9. LANSOPRAZOLE [Concomitant]
  10. TRAMADOL HCL [Concomitant]
  11. MORPHINE [Concomitant]
  12. BENDROFLUMETHIAZIDE [Concomitant]
  13. DOCUSATE SODIUM [Concomitant]
  14. PREV MEDS [Concomitant]

REACTIONS (5)
  - BLISTER [None]
  - DERMATITIS ALLERGIC [None]
  - MOBILITY DECREASED [None]
  - PNEUMONIA [None]
  - RASH GENERALISED [None]
